FAERS Safety Report 19488273 (Version 2)
Quarter: 2021Q3

REPORT INFORMATION
  Report Type: Spontaneous
  Country: SK (occurrence: SK)
  Receive Date: 20210702
  Receipt Date: 20210731
  Transmission Date: 20211014
  Serious: Yes (Other)
  Sender: FDA-Public Use
  Company Number: NVSC2021SK146562

PATIENT
  Sex: Female

DRUGS (4)
  1. SIPONIMOD [Suspect]
     Active Substance: SIPONIMOD
     Indication: COGNITIVE DISORDER
  2. SIPONIMOD [Suspect]
     Active Substance: SIPONIMOD
     Indication: PARESIS
     Dosage: UNK
     Route: 065
  3. SIPONIMOD [Suspect]
     Active Substance: SIPONIMOD
     Indication: FATIGUE
  4. GILENYA [Suspect]
     Active Substance: FINGOLIMOD HYDROCHLORIDE
     Indication: SECONDARY PROGRESSIVE MULTIPLE SCLEROSIS
     Dosage: UNK
     Route: 065
     Dates: start: 20131103

REACTIONS (3)
  - Secondary progressive multiple sclerosis [Not Recovered/Not Resolved]
  - Gait disturbance [Not Recovered/Not Resolved]
  - Product use in unapproved indication [Unknown]
